FAERS Safety Report 10357764 (Version 1)
Quarter: 2014Q3

REPORT INFORMATION
  Report Type: Spontaneous
  Country: JP (occurrence: JP)
  Receive Date: 20140801
  Receipt Date: 20140801
  Transmission Date: 20150326
  Serious: Yes (Death, Other)
  Sender: FDA-Public Use
  Company Number: PHHY2010JP095898

PATIENT
  Age: 60 Year
  Sex: Female

DRUGS (1)
  1. EXJADE [Suspect]
     Active Substance: DEFERASIROX
     Dosage: 625 MG, DAILY
     Dates: start: 200902

REACTIONS (2)
  - Disease progression [Fatal]
  - Aplastic anaemia [Fatal]
